FAERS Safety Report 4354871-8 (Version None)
Quarter: 2004Q2

REPORT INFORMATION
  Report Type: 
  Country: None (occurrence: None)
  Receive Date: 20040507
  Receipt Date: 20040420
  Transmission Date: 20050107
  Serious: Yes (Hospitalization)
  Sender: FDA-Public Use
  Company Number: PHFR2004IE01842

PATIENT
  Age: 45 Year
  Sex: Female

DRUGS (1)
  1. CLOZARIL [Suspect]
     Indication: SCHIZOPHRENIA
     Dosage: 325MG/DAY
     Route: 048
     Dates: start: 19971020

REACTIONS (4)
  - DYSPNOEA [None]
  - ECHOCARDIOGRAM ABNORMAL [None]
  - PALPITATIONS [None]
  - VENTRICULAR TACHYCARDIA [None]
